FAERS Safety Report 19176173 (Version 1)
Quarter: 2021Q2

REPORT INFORMATION
  Report Type: Spontaneous
  Country: US (occurrence: US)
  Receive Date: 20210423
  Receipt Date: 20210423
  Transmission Date: 20210717
  Serious: No
  Sender: FDA-Public Use
  Company Number: 2020SGN03798

PATIENT
  Sex: Female

DRUGS (1)
  1. TUKYSA [Suspect]
     Active Substance: TUCATINIB
     Indication: BREAST CANCER FEMALE
     Dosage: UNK, BID
     Route: 048

REACTIONS (5)
  - Urinary tract infection [Unknown]
  - Arthralgia [Unknown]
  - Nausea [Unknown]
  - Joint swelling [Unknown]
  - Decreased appetite [Unknown]
